FAERS Safety Report 10311600 (Version 1)
Quarter: 2014Q3

REPORT INFORMATION
  Report Type: Spontaneous
  Country: US (occurrence: US)
  Receive Date: 20140717
  Receipt Date: 20140717
  Transmission Date: 20150326
  Serious: Yes (Other)
  Sender: FDA-Public Use
  Company Number: US-ELI_LILLY_AND_COMPANY-US201407003432

PATIENT
  Sex: Female

DRUGS (3)
  1. HUMALOG [Suspect]
     Active Substance: INSULIN LISPRO
     Indication: DIABETES MELLITUS
     Dosage: UNK, PRN
     Route: 065
  2. HUMULIN 70/30 [Suspect]
     Active Substance: INSULIN HUMAN
     Indication: DIABETES MELLITUS
     Dosage: UNK
     Route: 065
  3. LANTUS [Concomitant]
     Active Substance: INSULIN GLARGINE

REACTIONS (6)
  - Feeling drunk [Recovered/Resolved]
  - Blood glucose abnormal [Recovered/Resolved]
  - Haemorrhage [Unknown]
  - Fall [Recovered/Resolved]
  - Disorientation [Recovered/Resolved]
  - Hyperhidrosis [Recovered/Resolved]
